FAERS Safety Report 7472666-3 (Version None)
Quarter: 2011Q2

REPORT INFORMATION
  Report Type: 
  Country: None (occurrence: None)
  Receive Date: 20110511
  Receipt Date: 20110428
  Transmission Date: 20111010
  Serious: Yes (Life-Threatening, Hospitalization)
  Sender: FDA-Public Use
  Company Number: US-CELGENEUS-163-C5013-11021253

PATIENT
  Sex: Male
  Weight: 85.352 kg

DRUGS (14)
  1. CALCIUM CHLORIDE [Concomitant]
  2. SIMVASTATIN [Concomitant]
     Dosage: 80 MILLIGRAM
     Route: 048
     Dates: start: 20070101
  3. LENALIDOMIDE [Suspect]
     Indication: PROSTATE CANCER
     Dosage: 25 MILLIGRAM
     Route: 048
     Dates: start: 20110125, end: 20110206
  4. DOCETAXEL [Suspect]
     Indication: PROSTATE CANCER
     Route: 065
     Dates: start: 20110125, end: 20110125
  5. PREDNISONE TAB [Suspect]
     Indication: PROSTATE CANCER
     Dosage: 5 MILLIGRAM
     Route: 065
     Dates: start: 20110125, end: 20110206
  6. LUPRON [Concomitant]
     Indication: PROSTATE CANCER
     Route: 058
     Dates: start: 20061201
  7. NEXIUM [Concomitant]
     Dosage: 40 MILLIGRAM
     Route: 048
     Dates: start: 20060101
  8. CALCIUM CHLORIDE [Concomitant]
     Dosage: 1 GRAM
     Route: 041
     Dates: start: 20110206
  9. ZETIA [Concomitant]
     Dosage: 10 MILLIGRAM
     Route: 048
     Dates: start: 20070101
  10. RAMIPRIL [Concomitant]
     Indication: HYPERTENSION
     Dosage: 10 MILLIGRAM
     Route: 048
     Dates: start: 20070101
  11. CALCIUM PLUS VIT D3 [Concomitant]
     Dosage: 600 MILLIGRAM
     Route: 048
     Dates: start: 20090601
  12. NEXIUM [Concomitant]
     Dosage: 40 MILLIGRAM
     Route: 041
     Dates: start: 20110206, end: 20110212
  13. ASPIRIN [Concomitant]
     Dosage: 81 MILLIGRAM
     Route: 048
     Dates: start: 20040201
  14. FLOMAX [Concomitant]
     Dosage: .4 MILLIGRAM
     Route: 048
     Dates: start: 20080101

REACTIONS (1)
  - GASTROINTESTINAL HAEMORRHAGE [None]
